FAERS Safety Report 19857221 (Version 1)
Quarter: 2021Q3

REPORT INFORMATION
  Report Type: Spontaneous
  Country: US (occurrence: US)
  Receive Date: 20210920
  Receipt Date: 20210920
  Transmission Date: 20211014
  Serious: No
  Sender: FDA-Public Use
  Company Number: US-ALKERMES INC.-ALK-2021-004838

PATIENT
  Age: 1 Month

DRUGS (1)
  1. VIVITROL [Suspect]
     Active Substance: NALTREXONE
     Indication: PATERNAL EXPOSURE TIMING UNSPECIFIED
     Dosage: 380 MILLIGRAM, QMO
     Route: 064
     Dates: start: 2020, end: 2020

REACTIONS (1)
  - Paternal exposure timing unspecified [Unknown]
